FAERS Safety Report 8575703 (Version 4)
Quarter: 2012Q4

REPORT INFORMATION
  Report Type: 
  Country: US (occurrence: US)
  Receive Date: 20120523
  Receipt Date: 20121127
  Transmission Date: 20130627
  Serious: Yes (Other)
  Sender: FDA-Public Use
  Company Number: US-GLAXOSMITHKLINE-A0977682A

PATIENT
  Age: 64 Year
  Sex: Male
  Weight: 90.9 kg

DRUGS (2)
  1. ADVAIR [Suspect]
     Indication: ASTHMA
     Dosage: 1PUFF Twice per day
     Route: 055
     Dates: start: 200006
  2. VIAGRA [Concomitant]

REACTIONS (4)
  - Asthma [Recovered/Resolved]
  - Drug ineffective [Recovered/Resolved]
  - Product quality issue [Unknown]
  - Drug administration error [Recovered/Resolved]
